FAERS Safety Report 6145433-0 (Version None)
Quarter: 2009Q2

REPORT INFORMATION
  Report Type: 
  Country: None (occurrence: None)
  Receive Date: 20090402
  Receipt Date: 20090323
  Transmission Date: 20091009
  Serious: Yes (Death)
  Sender: FDA-Public Use
  Company Number: 2009AP001245

PATIENT
  Age: 58 Year
  Sex: Male

DRUGS (3)
  1. FLUOXETINE HCL [Suspect]
  2. AMITRIPTYLINE HCL [Suspect]
  3. ZYPREXA [Suspect]
     Dosage: 15 MG;BID

REACTIONS (1)
  - DRUG TOXICITY [None]
